FAERS Safety Report 4470651-7 (Version None)
Quarter: 2004Q4

REPORT INFORMATION
  Report Type: 
  Country: None (occurrence: None)
  Receive Date: 20041005
  Receipt Date: 20040927
  Transmission Date: 20050328
  Serious: Yes (Death)
  Sender: FDA-Public Use
  Company Number: 2004AC00398

PATIENT
  Age: 17 Year
  Sex: Female

DRUGS (2)
  1. MEROPENEM [Suspect]
     Indication: FEBRILE NEUTROPENIA
  2. MULTIPLE ANTIBIOTICS [Concomitant]

REACTIONS (3)
  - PATHOGEN RESISTANCE [None]
  - PSEUDOMONAL SEPSIS [None]
  - SEPTIC SHOCK [None]
